FAERS Safety Report 14342242 (Version 1)
Quarter: 2018Q1

REPORT INFORMATION
  Report Type: Spontaneous
  Country: US (occurrence: US)
  Receive Date: 20180102
  Receipt Date: 20180102
  Transmission Date: 20180509
  Serious: No
  Sender: FDA-Public Use
  Company Number: US-TEVA-724005ACC

PATIENT
  Sex: Female

DRUGS (1)
  1. DULOXETINE DELAYED-RELEASE CAPSULES, USP [Suspect]
     Active Substance: DULOXETINE HYDROCHLORIDE

REACTIONS (6)
  - Hyperhidrosis [Unknown]
  - Crying [Unknown]
  - Irritability [Unknown]
  - Chills [Unknown]
  - Restlessness [Unknown]
  - Drug withdrawal syndrome [Unknown]
